FAERS Safety Report 21797110 (Version 3)
Quarter: 2023Q2

REPORT INFORMATION
  Report Type: Spontaneous
  Country: US (occurrence: US)
  Receive Date: 20221230
  Receipt Date: 20230401
  Transmission Date: 20230722
  Serious: Yes (Death, Other)
  Sender: FDA-Public Use
  Company Number: US-AMGEN-USASP2022224690

PATIENT

DRUGS (1)
  1. TALIMOGENE LAHERPAREPVEC [Suspect]
     Active Substance: TALIMOGENE LAHERPAREPVEC
     Indication: Skin cancer
     Dosage: UNK
     Route: 065

REACTIONS (7)
  - Death [Fatal]
  - Dermatitis bullous [Unknown]
  - Eczema [Unknown]
  - Lichen planus [Unknown]
  - Pruritus [Unknown]
  - Rash maculo-papular [Unknown]
  - Rash [Unknown]
